FAERS Safety Report 4975477-3 (Version None)
Quarter: 2006Q2

REPORT INFORMATION
  Report Type: 
  Country: None (occurrence: None)
  Receive Date: 20060410
  Receipt Date: 20060330
  Transmission Date: 20061013
  Serious: Yes (Congenital Anomaly)
  Sender: FDA-Public Use
  Company Number: FR-2004-026592

PATIENT
  Sex: Female
  Weight: 3.4 kg

DRUGS (1)
  1. MIRENA [Suspect]
     Dosage: 20 UG/DAY, CONT, INTRA-UTERINE
     Route: 015
     Dates: start: 20030505, end: 20040107

REACTIONS (8)
  - BLOOD TESTOSTERONE INCREASED [None]
  - BREECH PRESENTATION [None]
  - CAESAREAN SECTION [None]
  - CONGENITAL GENITAL MALFORMATION FEMALE [None]
  - DRUG EXPOSURE DURING PREGNANCY [None]
  - PERSISTENT UROGENITAL SINUS [None]
  - PSEUDOHERMAPHRODITISM FEMALE [None]
  - VIRILISM [None]
